FAERS Safety Report 6174098-7 (Version None)
Quarter: 2009Q2

REPORT INFORMATION
  Report Type: 
  Country: None (occurrence: None)
  Receive Date: 20090430
  Receipt Date: 20090422
  Transmission Date: 20091009
  Serious: Yes (Hospitalization, Other)
  Sender: FDA-Public Use
  Company Number: PHHY2009ES15134

PATIENT
  Age: 80 Year
  Sex: Male

DRUGS (2)
  1. LESCOL [Suspect]
     Indication: HYPERCHOLESTEROLAEMIA
     Dosage: 40MG PER DAY
     Route: 048
     Dates: start: 20050101, end: 20080610
  2. DIAMICRON [Suspect]
     Dosage: 80MG PER DAY
     Route: 048
     Dates: start: 20050101, end: 20080610

REACTIONS (6)
  - ABDOMINAL PAIN [None]
  - ASTHENIA [None]
  - DIABETES MELLITUS [None]
  - HEPATIC CIRRHOSIS [None]
  - MUSCULAR WEAKNESS [None]
  - PORTAL HYPERTENSION [None]
